FAERS Safety Report 4785299-4 (Version None)
Quarter: 2005Q3

REPORT INFORMATION
  Report Type: 
  Country: None (occurrence: None)
  Receive Date: 20050914
  Receipt Date: 20040726
  Transmission Date: 20060218
  Serious: Yes (Death)
  Sender: FDA-Public Use
  Company Number: 163-20785-04070435

PATIENT
  Age: 65 Year
  Sex: Male

DRUGS (4)
  1. THALOMID [Suspect]
     Indication: PANCREATIC CARCINOMA
     Dosage: 150 MG, DAILY, ORAL
     Route: 048
     Dates: start: 20031125, end: 20040101
  2. GEMZAR [Concomitant]
  3. TAXOTERE [Concomitant]
  4. XELODA [Concomitant]

REACTIONS (2)
  - DEATH [None]
  - DISEASE PROGRESSION [None]
